FAERS Safety Report 9763965 (Version 1)
Quarter: 2013Q4

REPORT INFORMATION
  Report Type: Spontaneous
  Country: US (occurrence: US)
  Receive Date: 20131216
  Receipt Date: 20131216
  Transmission Date: 20140711
  Serious: No
  Sender: FDA-Public Use
  Company Number: US-BIOGENIDEC-2013BI113463

PATIENT
  Sex: Female

DRUGS (5)
  1. TECFIDERA [Suspect]
     Indication: MULTIPLE SCLEROSIS
     Route: 048
  2. LEXAPRO [Concomitant]
  3. VIT D [Concomitant]
  4. SPIRONOLACTONE [Concomitant]
  5. MSM [Concomitant]

REACTIONS (4)
  - Depression [Unknown]
  - Diarrhoea [Unknown]
  - Flushing [Unknown]
  - Abdominal pain upper [Unknown]
